FAERS Safety Report 8948724 (Version 1)
Quarter: 2012Q4

REPORT INFORMATION
  Report Type: 
  Country: US (occurrence: US)
  Receive Date: 20121206
  Receipt Date: 20121206
  Transmission Date: 20130627
  Serious: Yes (Other)
  Sender: FDA-Public Use
  Company Number: US-SANOFI-AVENTIS-2012SA089015

PATIENT
  Sex: Female

DRUGS (10)
  1. PLAVIX [Suspect]
     Indication: PROPHYLAXIS
     Route: 048
     Dates: start: 2009
  2. ZOLOFT [Concomitant]
  3. TOPAMAX [Concomitant]
  4. BUSPAR [Concomitant]
  5. AMLODIPINE [Concomitant]
  6. HYDROCHLOROTHIAZIDE [Concomitant]
  7. ROSUVASTATIN [Concomitant]
  8. TIZANIDINE [Concomitant]
  9. CYMBALTA [Concomitant]
  10. NORTRIPTYLINE [Concomitant]

REACTIONS (2)
  - Road traffic accident [Recovering/Resolving]
  - Contusion [Not Recovered/Not Resolved]
